FAERS Safety Report 14798589 (Version 1)
Quarter: 2018Q2

REPORT INFORMATION
  Report Type: Spontaneous
  Country: FR (occurrence: FR)
  Receive Date: 20180424
  Receipt Date: 20180424
  Transmission Date: 20180711
  Serious: Yes (Other)
  Sender: FDA-Public Use
  Company Number: FR-MERCK KGAA-2046358

PATIENT
  Age: 44 Year
  Sex: Female

DRUGS (1)
  1. NOVOTHYROX [Suspect]
     Active Substance: LEVOTHYROXINE SODIUM
     Indication: PRODUCT USED FOR UNKNOWN INDICATION
     Dates: start: 201704, end: 201709

REACTIONS (26)
  - Muscle spasms [Recovering/Resolving]
  - Nausea [None]
  - Gastrointestinal disorder [None]
  - Abdominal distension [None]
  - Dyspepsia [Recovering/Resolving]
  - Morbid thoughts [None]
  - Malaise [None]
  - Myalgia [Recovering/Resolving]
  - Somnolence [None]
  - Pain [Recovering/Resolving]
  - Suicidal ideation [None]
  - Neck pain [Recovering/Resolving]
  - Headache [Recovering/Resolving]
  - Mood altered [None]
  - Disturbance in attention [Recovering/Resolving]
  - Fatigue [Recovering/Resolving]
  - Crying [None]
  - Decreased interest [None]
  - Eating disorder [Recovering/Resolving]
  - Back pain [Recovering/Resolving]
  - Decreased appetite [None]
  - Fear [None]
  - Dizziness [Recovering/Resolving]
  - Alopecia [None]
  - Apathy [None]
  - Tri-iodothyronine decreased [None]

NARRATIVE: CASE EVENT DATE: 20170612
